FAERS Safety Report 16908168 (Version 2)
Quarter: 2019Q4

REPORT INFORMATION
  Report Type: Spontaneous
  Country: US (occurrence: US)
  Receive Date: 20191011
  Receipt Date: 20191030
  Transmission Date: 20200122
  Serious: No
  Sender: FDA-Public Use
  Company Number: US-PFIZER INC-2019439249

PATIENT
  Age: 73 Year
  Sex: Female
  Weight: 53.7 kg

DRUGS (3)
  1. RAPAMUNE [Suspect]
     Active Substance: SIROLIMUS
     Dosage: 1 MG, DAILY
     Dates: start: 200504
  2. RAPAMUNE [Suspect]
     Active Substance: SIROLIMUS
     Indication: HEART TRANSPLANT
     Dosage: 4 MG, DAILY
     Route: 048
     Dates: start: 2005, end: 201907
  3. XALKORI [Concomitant]
     Active Substance: CRIZOTINIB
     Indication: METASTATIC SQUAMOUS CELL CARCINOMA
     Dosage: 250 MG, 2X/DAY
     Route: 048
     Dates: start: 201906

REACTIONS (4)
  - Immunosuppressant drug level increased [Recovered/Resolved]
  - Weight decreased [Unknown]
  - Off label use [Unknown]
  - Product use in unapproved indication [Unknown]
